FAERS Safety Report 4677186-7 (Version None)
Quarter: 2005Q2

REPORT INFORMATION
  Report Type: 
  Country: None (occurrence: None)
  Receive Date: 20050526
  Receipt Date: 20050423
  Transmission Date: 20051028
  Serious: Yes (Hospitalization, Other)
  Sender: FDA-Public Use
  Company Number: HQWYE874523MAY05

PATIENT
  Age: 57 Year
  Sex: Female

DRUGS (4)
  1. EFFEXOR [Suspect]
     Dosage: 150 MG 1X PER 1 DAY
     Dates: start: 20050423, end: 20050427
  2. AMITRIPTYLINE HCL [Suspect]
     Dosage: 50 MG 1X PER 1 DAY
     Dates: start: 20030101, end: 20050422
  3. RISPERDAL [Concomitant]
  4. REMERON [Concomitant]

REACTIONS (10)
  - BALANCE DISORDER [None]
  - BLOOD PRESSURE INCREASED [None]
  - DIZZINESS [None]
  - DRUG INTERACTION [None]
  - HEART RATE INCREASED [None]
  - HYPERHIDROSIS [None]
  - INSOMNIA [None]
  - RESTLESSNESS [None]
  - TREMOR [None]
  - VERTIGO [None]
